FAERS Safety Report 15983870 (Version 3)
Quarter: 2019Q1

REPORT INFORMATION
  Report Type: Spontaneous
  Country: SE (occurrence: SE)
  Receive Date: 20190220
  Receipt Date: 20190314
  Transmission Date: 20190418
  Serious: Yes (Other)
  Sender: FDA-Public Use
  Company Number: SE-009507513-1902SWE005115

PATIENT
  Age: 44 Year
  Sex: Female

DRUGS (1)
  1. NUVARING [Suspect]
     Active Substance: ETHINYL ESTRADIOL\ETONOGESTREL
     Indication: CONTRACEPTION
     Dosage: 0.120MG/0.015MG PER 24HOURS
     Route: 067
     Dates: end: 20190125

REACTIONS (8)
  - Uterine inflammation [Unknown]
  - Uterine infection [Recovering/Resolving]
  - Pyrexia [Recovered/Resolved]
  - Abdominal tenderness [Recovering/Resolving]
  - Vaginal discharge [Recovering/Resolving]
  - Hypersensitivity [Recovering/Resolving]
  - Gait disturbance [Recovering/Resolving]
  - Abdominal distension [Recovering/Resolving]

NARRATIVE: CASE EVENT DATE: 20181215
